FAERS Safety Report 10249049 (Version 1)
Quarter: 2014Q2

REPORT INFORMATION
  Report Type: Spontaneous
  Country: US (occurrence: None)
  Receive Date: 20140522
  Receipt Date: 20140522
  Transmission Date: 20141212
  Serious: No
  Sender: FDA-Public Use
  Company Number: 1000065788

PATIENT
  Sex: Female

DRUGS (2)
  1. TUDORZA PRESSAIR (ACLIDINIUM BROMIDE) (400 MICROGRAM, POWDER) [Suspect]
     Indication: CHRONIC OBSTRUCTIVE PULMONARY DISEASE
     Dosage: 800 UG (400 UG, 2 IN 1 D)
     Route: 055
     Dates: start: 201312, end: 201403
  2. THYROID MEDICATION (NOS) [Concomitant]

REACTIONS (3)
  - Headache [None]
  - Nasopharyngitis [None]
  - Musculoskeletal discomfort [None]
